FAERS Safety Report 11806895 (Version 1)
Quarter: 2015Q4

REPORT INFORMATION
  Report Type: Spontaneous
  Country: CA (occurrence: CA)
  Receive Date: 20151207
  Receipt Date: 20151207
  Transmission Date: 20160305
  Serious: Yes (Other)
  Sender: FDA-Public Use
  Company Number: CA-TEVA-615651USA

PATIENT
  Age: 71 Year
  Sex: Female
  Weight: 200 kg

DRUGS (1)
  1. TEVA-IRBESARTAN HCTZ [Suspect]
     Active Substance: HYDROCHLOROTHIAZIDE\IRBESARTAN
     Indication: HYPERTENSION
     Dosage: 1  DAILY;

REACTIONS (1)
  - Palpitations [Recovered/Resolved]
